FAERS Safety Report 9434151 (Version 2)
Quarter: 2013Q4

REPORT INFORMATION
  Report Type: Report from Study
  Country: BR (occurrence: BR)
  Receive Date: 20130801
  Receipt Date: 20131023
  Transmission Date: 20140711
  Serious: Yes (Other)
  Sender: FDA-Public Use
  Company Number: BR-ROCHE-1255437

PATIENT
  Sex: Female
  Weight: 86 kg

DRUGS (13)
  1. XOLAIR [Suspect]
     Indication: ASTHMA
     Dosage: 2 AMPOULES MONTHLY
     Route: 065
     Dates: start: 201210
  2. XOLAIR [Suspect]
     Route: 065
     Dates: start: 20130624
  3. GLIFAGE [Concomitant]
  4. INSULIN [Concomitant]
  5. SALBUTAMOL [Concomitant]
  6. LOSARTAN [Concomitant]
  7. AMLODIPINE [Concomitant]
  8. HYDROCHLOROTHIAZIDE [Concomitant]
  9. ALENIA (BRAZIL) [Concomitant]
  10. FORMOTEROL [Concomitant]
  11. BUDESONIDE [Concomitant]
  12. LORATADINA [Concomitant]
  13. INSULIN GLARGINE [Concomitant]

REACTIONS (5)
  - Pneumonia [Not Recovered/Not Resolved]
  - Sinusitis [Not Recovered/Not Resolved]
  - Back pain [Not Recovered/Not Resolved]
  - Cough [Not Recovered/Not Resolved]
  - Fatigue [Not Recovered/Not Resolved]
